FAERS Safety Report 8506333-1 (Version None)
Quarter: 2012Q3

REPORT INFORMATION
  Report Type: 
  Country: None (occurrence: None)
  Receive Date: 20120705
  Receipt Date: 20120705
  Transmission Date: 20120928
  Serious: Yes (Other)
  Sender: FDA-Public Use
  Company Number: None

PATIENT
  Sex: Male

DRUGS (4)
  1. CLOPIDOGREL [Suspect]
     Indication: THERAPEUTIC PROCEDURE
     Dosage: 75MG DAILEY ORAL
     Route: 048
     Dates: start: 20120619
  2. CLOPIDOGREL [Suspect]
     Indication: CARDIAC DISORDER
     Dosage: 75MG DAILEY ORAL
     Route: 048
     Dates: start: 20120619
  3. CLOPIDOGREL [Suspect]
     Indication: THERAPEUTIC PROCEDURE
     Dosage: 75MG DAILEY ORAL
     Route: 048
     Dates: start: 20120601
  4. CLOPIDOGREL [Suspect]
     Indication: CARDIAC DISORDER
     Dosage: 75MG DAILEY ORAL
     Route: 048
     Dates: start: 20120601

REACTIONS (3)
  - NEUROPATHY PERIPHERAL [None]
  - PRODUCT SUBSTITUTION ISSUE [None]
  - CONDITION AGGRAVATED [None]
